FAERS Safety Report 17352959 (Version 1)
Quarter: 2020Q1

REPORT INFORMATION
  Report Type: Spontaneous
  Country: US (occurrence: US)
  Receive Date: 20200131
  Receipt Date: 20200131
  Transmission Date: 20200409
  Serious: Yes (Hospitalization)
  Sender: FDA-Public Use
  Company Number: US-EMCURE PHARMACEUTICALS LTD-2020-EPL-0073

PATIENT
  Age: 58 Year
  Sex: Male

DRUGS (6)
  1. ACETAMINOPHEN. [Suspect]
     Active Substance: ACETAMINOPHEN
     Indication: POSTOPERATIVE ANALGESIA
     Dosage: 1 GRAM, EVERY 6 HOURS,
     Route: 048
  2. SERTRALINE [Concomitant]
     Active Substance: SERTRALINE HYDROCHLORIDE
  3. MULTIVITAMIN                       /00097801/ [Concomitant]
     Active Substance: VITAMINS
  4. OXYCODONE [Suspect]
     Active Substance: OXYCODONE
     Indication: POSTOPERATIVE ANALGESIA
     Dosage: 5?10 MG ORALLY EVERY FOUR HOURS AS NEEDED
     Route: 048
  5. ARIPIPRAZOLE. [Concomitant]
     Active Substance: ARIPIPRAZOLE
  6. HYDROMORPHONE [Suspect]
     Active Substance: HYDROMORPHONE
     Indication: BREAKTHROUGH PAIN
     Dosage: 0.5 MILLIGRAM, EVERY 4 HOURS AS NEEDED
     Route: 042

REACTIONS (2)
  - Hepatic function abnormal [Recovering/Resolving]
  - Hypoglycaemia [Recovered/Resolved]
